FAERS Safety Report 5700813-X (Version None)
Quarter: 2008Q2

REPORT INFORMATION
  Report Type: 
  Country: None (occurrence: None)
  Receive Date: 20080410
  Receipt Date: 20080328
  Transmission Date: 20081010
  Serious: Yes (Other)
  Sender: FDA-Public Use
  Company Number: DE-GILEAD-2008-0015142

PATIENT
  Sex: Male
  Weight: 73 kg

DRUGS (7)
  1. VIREAD [Suspect]
     Indication: HIV INFECTION
     Route: 048
     Dates: start: 20030525, end: 20071218
  2. ASPIRIN [Concomitant]
     Indication: ATRIAL FIBRILLATION
  3. DDI [Concomitant]
     Indication: HIV INFECTION
     Route: 048
     Dates: start: 20030502
  4. ABACAVIR [Concomitant]
     Indication: HIV INFECTION
     Route: 048
     Dates: start: 20030502
  5. TIPRANAVIR [Concomitant]
     Indication: HIV INFECTION
     Route: 048
     Dates: start: 20030502
  6. RITONAVIR [Concomitant]
     Indication: HIV INFECTION
     Route: 048
     Dates: start: 20030502
  7. L-THYROXIN [Concomitant]
     Indication: HYPOTHYROIDISM

REACTIONS (2)
  - FANCONI SYNDROME ACQUIRED [None]
  - NEPHROTIC SYNDROME [None]
